FAERS Safety Report 5318893-2 (Version None)
Quarter: 2007Q1

REPORT INFORMATION
  Report Type: 
  Country: None (occurrence: None)
  Receive Date: 20070201
  Receipt Date: 20061129
  Transmission Date: 20070707
  Serious: No
  Sender: FDA-Public Use
  Company Number: VNL_0312_2006

PATIENT
  Age: 61 Year
  Sex: Male
  Weight: 104.3273 kg

DRUGS (17)
  1. APOKYN [Suspect]
     Indication: PARKINSON'S DISEASE
     Dosage: 0.2 ML PRN SC
     Route: 058
     Dates: start: 20061101
  2. COUMADIN [Suspect]
     Indication: MITRAL VALVE REPLACEMENT
     Dosage: 10 MG 5XWK PO
     Route: 048
     Dates: start: 19980101, end: 20061127
  3. CARBIDOPA AND LEVODOPA [Concomitant]
  4. COUMADIN [Suspect]
     Indication: MITRAL VALVE REPLACEMENT
     Dosage: 7.5 MG 2XWK PO
     Route: 048
     Dates: start: 19980101, end: 20061127
  5. COUMADIN [Suspect]
     Indication: MITRAL VALVE REPLACEMENT
     Dosage: 10 MG 5XWK PO
     Route: 048
     Dates: start: 20061201
  6. COUMADIN [Suspect]
     Indication: MITRAL VALVE REPLACEMENT
     Dosage: 7.5 MG 2XWK PO
     Route: 048
     Dates: start: 20061201
  7. CARBIDOPA-LEVODOPA SUSTAINED RELEASE [Concomitant]
  8. AMANTADINE HCL [Concomitant]
  9. VALIUM [Concomitant]
  10. PRAMIPREXOLE [Concomitant]
  11. FUROSEMIDE [Concomitant]
  12. ALLOPURINOL [Concomitant]
  13. LISINOPRIL [Concomitant]
  14. ATENOLOL [Concomitant]
  15. EZETIMIBE [Concomitant]
  16. TEMAZEPAM [Concomitant]
  17. VARDENAFIL [Concomitant]

REACTIONS (2)
  - EPISTAXIS [None]
  - INTERNATIONAL NORMALISED RATIO INCREASED [None]
